FAERS Safety Report 9598475 (Version 1)
Quarter: 2013Q4

REPORT INFORMATION
  Report Type: Spontaneous
  Country: US (occurrence: US)
  Receive Date: 20131004
  Receipt Date: 20131004
  Transmission Date: 20140711
  Serious: No
  Sender: FDA-Public Use
  Company Number: US-AMGEN-USASP2013024218

PATIENT
  Age: 22 Year
  Sex: Male

DRUGS (2)
  1. ENBREL [Suspect]
     Indication: PSORIATIC ARTHROPATHY
     Dosage: 50 MG, QWK
     Dates: start: 20110713
  2. ENBREL [Suspect]
     Indication: PSORIASIS

REACTIONS (2)
  - Arthralgia [Recovered/Resolved]
  - Psoriasis [Recovered/Resolved]
